FAERS Safety Report 9645747 (Version 2)
Quarter: 2013Q4

REPORT INFORMATION
  Report Type: Report from Study
  Country: US (occurrence: US)
  Receive Date: 20131025
  Receipt Date: 20131030
  Transmission Date: 20140711
  Serious: Yes (Death)
  Sender: FDA-Public Use
  Company Number: US-ROCHE-1292870

PATIENT
  Age: 62 Year
  Sex: Male

DRUGS (1)
  1. AVASTIN [Suspect]
     Indication: MALIGNANT MELANOMA
     Dosage: LAST DOSE PRIOR TO EVENT WAS GIVEN ON 10/SEP/2013
     Route: 042
     Dates: end: 20130926

REACTIONS (2)
  - Metastases to liver [Fatal]
  - Drug ineffective [Fatal]
